FAERS Safety Report 4297548-X (Version None)
Quarter: 2004Q1

REPORT INFORMATION
  Report Type: 
  Country: None (occurrence: None)
  Receive Date: 20040126
  Receipt Date: 20030829
  Transmission Date: 20041129
  Serious: No
  Sender: FDA-Public Use
  Company Number: USA030945898

PATIENT
  Age: 56 Year
  Sex: Female

DRUGS (4)
  1. STRATTERA [Suspect]
     Indication: BRAIN DAMAGE
     Dosage: 20 MG/DAY
     Dates: start: 20030808
  2. RITALIN [Concomitant]
  3. DOPAMINE HCL [Concomitant]
  4. MIRAPEX(MIRAPEX) [Concomitant]

REACTIONS (3)
  - DYSPNOEA [None]
  - EXERCISE LACK OF [None]
  - PRODUCTIVE COUGH [None]
